FAERS Safety Report 7869890-4 (Version None)
Quarter: 2011Q4

REPORT INFORMATION
  Report Type: 
  Country: None (occurrence: None)
  Receive Date: 20111028
  Receipt Date: 20110110
  Transmission Date: 20120403
  Serious: No
  Sender: FDA-Public Use
  Company Number: US-AMGEN-USASP2011001500

PATIENT
  Age: 13 Year
  Sex: Male

DRUGS (6)
  1. FOLIC ACID [Concomitant]
     Dosage: UNK
  2. PIROXICAM [Concomitant]
  3. LANSOPRAZOLE [Concomitant]
     Dosage: UNK
  4. ENBREL [Suspect]
     Indication: JUVENILE ARTHRITIS
     Dosage: 50 MG, QWK
     Route: 058
     Dates: start: 20101126, end: 20110107
  5. TREXALL [Concomitant]
     Dosage: 1 MG, QWK
     Dates: start: 20101001
  6. PREDNISONE [Concomitant]
     Dosage: UNK

REACTIONS (5)
  - INGROWING NAIL [None]
  - PARONYCHIA [None]
  - INJECTION SITE PAIN [None]
  - INJECTION SITE HAEMATOMA [None]
  - INJECTION SITE HAEMORRHAGE [None]
